FAERS Safety Report 23097685 (Version 1)
Quarter: 2023Q4

REPORT INFORMATION
  Report Type: Spontaneous
  Country: JP (occurrence: JP)
  Receive Date: 20231023
  Receipt Date: 20231023
  Transmission Date: 20240109
  Serious: Yes (Hospitalization, Other)
  Sender: FDA-Public Use
  Company Number: JP-STRIDES ARCOLAB LIMITED-2023SP015725

PATIENT
  Age: 2 Year
  Sex: Female

DRUGS (13)
  1. PREDNISOLONE [Suspect]
     Active Substance: PREDNISOLONE
     Indication: Langerhans^ cell histiocytosis
     Dosage: UNK, CYCLICAL
     Route: 065
  2. PREDNISOLONE [Suspect]
     Active Substance: PREDNISOLONE
     Dosage: UNK, (DOSE REDUCTION)
     Route: 065
  3. PREDNISOLONE [Suspect]
     Active Substance: PREDNISOLONE
     Dosage: UNK, (MAINTENANCE TREATMENT AT REDUCED DOSES)
     Route: 065
  4. METHOTREXATE [Suspect]
     Active Substance: METHOTREXATE
     Indication: Langerhans^ cell histiocytosis
     Dosage: UNK, AT REDUCED DOSE
     Route: 065
  5. CYTARABINE [Suspect]
     Active Substance: CYTARABINE
     Indication: Langerhans^ cell histiocytosis
     Dosage: UNK, CYCLICAL
     Route: 065
  6. CYTARABINE [Suspect]
     Active Substance: CYTARABINE
     Dosage: UNK, CYCLICAL (CYTARABINE WAS OMITTED AS 5TH DOSE IN FIRST CYCLE AND LATER CONTINUED)
     Route: 065
  7. CYTARABINE [Suspect]
     Active Substance: CYTARABINE
     Dosage: UNK, (DOSE REDUCTION)
     Route: 065
  8. CYTARABINE [Suspect]
     Active Substance: CYTARABINE
     Dosage: UNK, (MAINTENANCE TREATMENT AT REDUCED DOSES)
     Route: 065
  9. VINBLASTINE [Suspect]
     Active Substance: VINBLASTINE
     Indication: Langerhans^ cell histiocytosis
     Dosage: UNK, CYCLICAL
     Route: 065
  10. VINBLASTINE [Suspect]
     Active Substance: VINBLASTINE
     Dosage: UNK, (DOSE REDUCTION)
     Route: 065
  11. VINBLASTINE [Suspect]
     Active Substance: VINBLASTINE
     Dosage: UNK, (MAINTENANCE TREATMENT AT REDUCED DOSES)
     Route: 065
  12. TACROLIMUS [Concomitant]
     Active Substance: TACROLIMUS
     Indication: Immunosuppressant drug therapy
     Dosage: UNK
     Route: 065
  13. TACROLIMUS [Concomitant]
     Active Substance: TACROLIMUS
     Indication: Liver transplant

REACTIONS (4)
  - Hepatic function abnormal [Recovered/Resolved]
  - Myelosuppression [Unknown]
  - Anaemia [Unknown]
  - Off label use [Unknown]
